FAERS Safety Report 26039670 (Version 1)
Quarter: 2025Q4

REPORT INFORMATION
  Report Type: Spontaneous
  Country: EU (occurrence: EU)
  Receive Date: 20251113
  Receipt Date: 20251113
  Transmission Date: 20260118
  Serious: Yes (Hospitalization)
  Sender: TEVA
  Company Number: None

PATIENT
  Age: 86 Year
  Sex: Female
  Weight: 56 kg

DRUGS (8)
  1. ALLOPURINOL [Suspect]
     Active Substance: ALLOPURINOL
     Indication: Hyperuricaemia
     Dosage: ALLOPURINOL TEVA ITALIA*50 TABLETS 100 MG: 1 TABLET/DAY
     Route: 048
     Dates: start: 20250108, end: 202502
  2. NEBIVOLOL [Concomitant]
     Active Substance: NEBIVOLOL
     Indication: Product used for unknown indication
     Dosage: NEBIVOLOLO DOC*28 TABLETS 5 MG
     Route: 048
     Dates: start: 202210
  3. ASPIRIN LYSINE [Concomitant]
     Active Substance: ASPIRIN LYSINE
     Indication: Product used for unknown indication
     Dosage: *30 SACHETS ORAL POWDER 75 MG: 1 SACHET/DAY
     Route: 048
  4. AMLODIPINE BESYLATE\OLMESARTAN MEDOXOMIL [Concomitant]
     Active Substance: AMLODIPINE BESYLATE\OLMESARTAN MEDOXOMIL
     Indication: Hypertension
     Dosage: *28 TABLETS REV 40 MG + 10 MG: 1 TABLET/DAY
     Route: 048
  5. OMEPRAZOLE [Concomitant]
     Active Substance: OMEPRAZOLE
     Indication: Product used for unknown indication
     Dosage: 28 GASTRORES TABLETS 20 MG
     Route: 048
     Dates: start: 2013
  6. FIDATO [Suspect]
     Active Substance: CEFTRIAXONE SODIUM
     Indication: Chronic obstructive pulmonary disease
     Dosage: *1 VIAL IM 1 G + 1 VIAL SOLV 3.5 ML
     Route: 030
     Dates: start: 20250128, end: 202502
  7. LINAGLIPTIN [Concomitant]
     Active Substance: LINAGLIPTIN
     Indication: Type 2 diabetes mellitus
     Dosage: *28 TABLETS REV 5 MG: 1 TABLET/DAY
     Route: 048
  8. ATORVASTATINA AUROBINDO [Concomitant]
     Indication: Dyslipidaemia
     Dosage: *30 TABLETS 10 MG: 1 TABLET/DAY
     Route: 048

REACTIONS (8)
  - Rash maculo-papular [Recovered/Resolved]
  - Drug reaction with eosinophilia and systemic symptoms [Unknown]
  - Transaminases increased [Unknown]
  - Eosinophilia [Unknown]
  - Lip exfoliation [Recovered/Resolved]
  - Face oedema [Recovered/Resolved]
  - Leukocytosis [Unknown]
  - Erythema [Recovered/Resolved]

NARRATIVE: CASE EVENT DATE: 20250214
